FAERS Safety Report 6953287-5 (Version None)
Quarter: 2010Q3

REPORT INFORMATION
  Report Type: 
  Country: None (occurrence: None)
  Receive Date: 20100829
  Receipt Date: 20100601
  Transmission Date: 20110219
  Serious: No
  Sender: FDA-Public Use
  Company Number: US-ABBOTT-10P-163-0648979-00

PATIENT
  Age: 76 Year
  Sex: Male

DRUGS (4)
  1. NIASPAN [Suspect]
     Indication: BLOOD CHOLESTEROL INCREASED
     Dates: start: 20100101, end: 20100527
  2. LISINOPRIL [Concomitant]
     Indication: HYPERTENSION
  3. ACTOS [Concomitant]
     Indication: TYPE 2 DIABETES MELLITUS
  4. ASPIRIN [Concomitant]
     Indication: PROPHYLAXIS
     Dates: start: 20100101, end: 20100527

REACTIONS (2)
  - OEDEMA MOUTH [None]
  - PARAESTHESIA [None]
